FAERS Safety Report 17766250 (Version 1)
Quarter: 2020Q2

REPORT INFORMATION
  Report Type: Spontaneous
  Country: US (occurrence: US)
  Receive Date: 20200511
  Receipt Date: 20200511
  Transmission Date: 20200714
  Serious: No
  Sender: FDA-Public Use
  Company Number: US-UPSHER-SMITH LABORATORIES, LLC-2020USL00148

PATIENT
  Age: 23 Year
  Sex: Female
  Weight: 53.97 kg

DRUGS (5)
  1. KETOROLAC [Concomitant]
     Active Substance: KETOROLAC TROMETHAMINE
  2. LISINOPRIL. [Concomitant]
     Active Substance: LISINOPRIL
  3. AJOVY [Concomitant]
     Active Substance: FREMANEZUMAB-VFRM
  4. TOSYMRA [Suspect]
     Active Substance: SUMATRIPTAN
     Indication: MIGRAINE
     Dosage: 10 MG, ONCE
     Route: 045
     Dates: start: 20200129, end: 20200129
  5. PHENTERMINE. [Concomitant]
     Active Substance: PHENTERMINE

REACTIONS (6)
  - Vision blurred [Recovered/Resolved]
  - Visual impairment [Recovered/Resolved]
  - Aura [Recovered/Resolved]
  - Heart rate increased [Recovered/Resolved]
  - Diplopia [Recovered/Resolved]
  - Nasal discomfort [Recovered/Resolved]

NARRATIVE: CASE EVENT DATE: 20200129
